FAERS Safety Report 19728907 (Version 3)
Quarter: 2022Q4

REPORT INFORMATION
  Report Type: Spontaneous
  Country: DE (occurrence: DE)
  Receive Date: 20210820
  Receipt Date: 20221025
  Transmission Date: 20230112
  Serious: Yes (Hospitalization, Other)
  Sender: FDA-Public Use
  Company Number: None

PATIENT
  Age: 73 Year
  Sex: Female
  Weight: 100 kg

DRUGS (18)
  1. METHOTREXATE SODIUM [Suspect]
     Active Substance: METHOTREXATE SODIUM
     Dosage: WEEKLY (1X PER WEEK)
  2. CERTOLIZUMAB PEGOL [Suspect]
     Active Substance: CERTOLIZUMAB PEGOL
     Dosage: WEEKLY (1X PER WEEK)
  3. CHOLECALCIFEROL [Concomitant]
     Active Substance: CHOLECALCIFEROL
     Dosage: WEEKLY (1X PER WEEK)
  4. TORSEMIDE [Concomitant]
     Active Substance: TORSEMIDE
     Dosage: 10 MG, 1X/DAY(1-0-0-0)
  5. CANDESARTAN CILEXETIL\HYDROCHLOROTHIAZIDE [Concomitant]
     Active Substance: CANDESARTAN CILEXETIL\HYDROCHLOROTHIAZIDE
     Dosage: 1X/DAY (1-0-0-0)
  6. INSULIN LISPRO [Concomitant]
     Active Substance: INSULIN LISPRO
     Dosage: 40 - 0 -  25 - 0
  7. INSULIN LISPRO [Concomitant]
     Active Substance: INSULIN LISPRO
     Dosage: 50 IU, 56 - 0 - 36 - 0
  8. MOXONIDINE [Concomitant]
     Active Substance: MOXONIDINE
     Dosage: 0.2 MG, 2X/DAY (1-0-1-0)
  9. EDOXABAN [Concomitant]
     Active Substance: EDOXABAN
     Dosage: 30 MG, 1X/DAY (1-0-0-0 )
  10. ATORVASTATIN [Concomitant]
     Active Substance: ATORVASTATIN
     Dosage: 40 MG, 1X/DAY(0-0-1-0)
  11. NALOXONE HYDROCHLORIDE\TILIDINE HYDROCHLORIDE [Concomitant]
     Active Substance: NALOXONE HYDROCHLORIDE\TILIDINE HYDROCHLORIDE
     Dosage: 50 MG, 1X/DAY(0-0-1-0)
  12. CARVEDILOL [Concomitant]
     Active Substance: CARVEDILOL
     Dosage: 12.5 MG, 2X/DAY (1-0-1-0)
  13. METFORMIN [Concomitant]
     Active Substance: METFORMIN HYDROCHLORIDE
     Dosage: 1000 MG, 2X/DAY(1-0-1-0)
  14. PANTOPRAZOLE [Concomitant]
     Active Substance: PANTOPRAZOLE
     Dosage: 40 MG, 1X/DAY (1 - 0 - 0 - 0)
  15. APIXABAN [Concomitant]
     Active Substance: APIXABAN
     Dosage: 30 MG, 1X/DAY (1 - 0 - 0 - 0)
  16. CELECOXIB [Concomitant]
     Active Substance: CELECOXIB
     Dosage: 100 MG, 1X/DAY (1 - 0 - 0 - 0)
  17. HUMALOG MIX50/50 [Concomitant]
     Active Substance: INSULIN LISPRO
     Dosage: 2X/DAY (56-0-36-0 )
  18. INSULIN LISPRO [Concomitant]
     Active Substance: INSULIN LISPRO
     Dosage: 2X/DAY (40-0-25-0)

REACTIONS (33)
  - Pyrexia [Unknown]
  - Dyspnoea [Unknown]
  - Constipation [Unknown]
  - General physical health deterioration [Unknown]
  - Dysuria [Unknown]
  - Cough [Unknown]
  - Abdominal pain [Unknown]
  - Vomiting [Unknown]
  - Electrocardiogram abnormal [Unknown]
  - Oedema peripheral [Unknown]
  - Atrial fibrillation [Unknown]
  - Tachypnoea [Unknown]
  - Weight increased [Unknown]
  - Flank pain [Unknown]
  - Renal impairment [Unknown]
  - Localised infection [Unknown]
  - Hyperglycaemia [Unknown]
  - Abdominal pain [Unknown]
  - Condition aggravated [Unknown]
  - Renal pain [Unknown]
  - Blood glucose increased [Unknown]
  - Postrenal failure [Unknown]
  - Urinary tract infection [Unknown]
  - Calculus urinary [Unknown]
  - Candida infection [Unknown]
  - Renal colic [Unknown]
  - Pyelonephritis [Unknown]
  - Hydronephrosis [Unknown]
  - Renal failure [Unknown]
  - Urinary tract obstruction [Unknown]
  - Ureterolithiasis [Unknown]
  - Diabetes mellitus inadequate control [Unknown]
  - Urinary tract infection [Unknown]
